FAERS Safety Report 19209578 (Version 1)
Quarter: 2021Q2

REPORT INFORMATION
  Report Type: Spontaneous
  Country: ES (occurrence: ES)
  Receive Date: 20210503
  Receipt Date: 20210503
  Transmission Date: 20210717
  Serious: Yes (Death)
  Sender: FDA-Public Use
  Company Number: ES-JNJFOC-20210460590

PATIENT
  Age: 74 Year
  Sex: Male

DRUGS (6)
  1. DEPRAX [TRAZODONE HYDROCHLORIDE] [Concomitant]
     Active Substance: TRAZODONE HYDROCHLORIDE
     Route: 048
  2. INVEGA [Suspect]
     Active Substance: PALIPERIDONE
     Indication: PRODUCT USED FOR UNKNOWN INDICATION
     Route: 048
     Dates: start: 20210212
  3. COMIRNATY [Suspect]
     Active Substance: TOZINAMERAN
     Dosage: ; IN TOTAL
     Route: 065
     Dates: start: 20210411, end: 20210411
  4. COMIRNATY [Suspect]
     Active Substance: TOZINAMERAN
     Indication: COVID-19 IMMUNISATION
     Route: 030
  5. SINEMET PLUS [Concomitant]
     Active Substance: CARBIDOPA\LEVODOPA
     Dosage: 25 MG/100 MG
     Route: 048
  6. QUETIAPINA [Concomitant]
     Active Substance: QUETIAPINE
     Route: 048

REACTIONS (1)
  - Sudden death [Fatal]

NARRATIVE: CASE EVENT DATE: 20210412
